FAERS Safety Report 19459733 (Version 1)
Quarter: 2021Q2

REPORT INFORMATION
  Report Type: Spontaneous
  Country: US (occurrence: US)
  Receive Date: 20210624
  Receipt Date: 20210624
  Transmission Date: 20210717
  Serious: Yes (Hospitalization)
  Sender: FDA-Public Use
  Company Number: US-PFIZER INC-2021465575

PATIENT
  Sex: Female

DRUGS (1)
  1. MERREM [Suspect]
     Active Substance: MEROPENEM
     Dosage: 500 MG
     Route: 042

REACTIONS (1)
  - Condition aggravated [Unknown]
